FAERS Safety Report 9917845 (Version 1)
Quarter: 2014Q1

REPORT INFORMATION
  Report Type: Spontaneous
  Country: US (occurrence: US)
  Receive Date: 20140221
  Receipt Date: 20140221
  Transmission Date: 20141002
  Serious: Yes (Other)
  Sender: FDA-Public Use
  Company Number: US-GLAXOSMITHKLINE-A1061188A

PATIENT
  Age: 75 Year
  Sex: Male

DRUGS (13)
  1. ADVAIR [Suspect]
     Indication: CHRONIC OBSTRUCTIVE PULMONARY DISEASE
     Dosage: 2PUFF TWICE PER DAY
     Route: 055
     Dates: start: 200402
  2. SPIRIVA [Concomitant]
  3. PROCARDIA [Concomitant]
  4. LISINOPRIL [Concomitant]
  5. TOPROL [Concomitant]
  6. APIXABAN [Concomitant]
  7. SINGULAIR [Concomitant]
  8. ASPIRIN LOW DOSE [Concomitant]
  9. FLONASE [Concomitant]
  10. PROSCAR [Concomitant]
  11. FLOMAX [Concomitant]
  12. OMEPRAZOLE [Concomitant]
  13. RESTASIS [Concomitant]

REACTIONS (3)
  - Atrial fibrillation [Not Recovered/Not Resolved]
  - Cough [Not Recovered/Not Resolved]
  - Lacrimation increased [Not Recovered/Not Resolved]
